FAERS Safety Report 5374480-1 (Version None)
Quarter: 2007Q2

REPORT INFORMATION
  Report Type: 
  Country: None (occurrence: None)
  Receive Date: 20070629
  Receipt Date: 20070622
  Transmission Date: 20071010
  Serious: Yes (Other)
  Sender: FDA-Public Use
  Company Number: NL-ABBOTT-07P-114-0372395-00

PATIENT
  Sex: Male

DRUGS (2)
  1. DEPAKENE [Suspect]
     Indication: EPILEPSY
     Route: 048
     Dates: start: 20070201
  2. DEPAKENE [Suspect]
     Route: 048
     Dates: end: 20070201

REACTIONS (3)
  - DEREALISATION [None]
  - THINKING ABNORMAL [None]
  - URINE ODOUR ABNORMAL [None]
